FAERS Safety Report 23029416 (Version 1)
Quarter: 2023Q4

REPORT INFORMATION
  Report Type: Spontaneous
  Country: CN (occurrence: CN)
  Receive Date: 20231004
  Receipt Date: 20231004
  Transmission Date: 20240110
  Serious: Yes (Other)
  Sender: FDA-Public Use
  Company Number: CN-PFIZER INC-PV202300163640

PATIENT
  Age: 3 Year
  Sex: Male
  Weight: 15 kg

DRUGS (3)
  1. ZITHROMAX [Suspect]
     Active Substance: AZITHROMYCIN DIHYDRATE
     Indication: Anti-infective therapy
     Dosage: 0.15 G, 1X/DAY
     Route: 048
     Dates: start: 20230924, end: 20230924
  2. QING XUAN ZHI KE [Concomitant]
     Indication: Bronchitis
     Dosage: 5 G, 3X/DAY
     Route: 048
     Dates: start: 20230924, end: 20230924
  3. PROCATEROL HYDROCHLORIDE [Concomitant]
     Active Substance: PROCATEROL HYDROCHLORIDE
     Indication: Bronchitis
     Dosage: 3.5 ML, 2X/DAY
     Route: 048
     Dates: start: 20230924, end: 20230924

REACTIONS (2)
  - Rash papular [Recovering/Resolving]
  - Rash pruritic [Recovering/Resolving]

NARRATIVE: CASE EVENT DATE: 20230924
